FAERS Safety Report 9184871 (Version 1)
Quarter: 2013Q1

REPORT INFORMATION
  Report Type: Spontaneous
  Country: US (occurrence: US)
  Receive Date: 20130325
  Receipt Date: 20130325
  Transmission Date: 20140127
  Serious: No
  Sender: FDA-Public Use
  Company Number: US-BRISTOL-MYERS SQUIBB COMPANY-16511842

PATIENT
  Age: 86 Year
  Sex: Female

DRUGS (1)
  1. ERBITUX [Suspect]
     Indication: TONSIL CANCER
     Dosage: ERBITUX INFUSIONS AND THE LAST COMING ON 09APR2012?400MG/M2 LOADING DOSE
     Route: 042
     Dates: start: 20120329

REACTIONS (1)
  - Hypoacusis [Unknown]
